FAERS Safety Report 22083043 (Version 1)
Quarter: 2023Q1

REPORT INFORMATION
  Report Type: Report from Study
  Country: HN (occurrence: HN)
  Receive Date: 20230310
  Receipt Date: 20230310
  Transmission Date: 20230418
  Serious: Yes (Other)
  Sender: FDA-Public Use
  Company Number: HN-002147023-NVSC2023HN051814

PATIENT
  Age: 69 Year
  Sex: Male

DRUGS (2)
  1. EXFORGE HCT [Suspect]
     Active Substance: AMLODIPINE BESYLATE\HYDROCHLOROTHIAZIDE\VALSARTAN
     Indication: Hypertension
     Dosage: 10/320/25 MG, QD
     Route: 048
     Dates: start: 202203
  2. EXFORGE HCT [Suspect]
     Active Substance: AMLODIPINE BESYLATE\HYDROCHLOROTHIAZIDE\VALSARTAN
     Dosage: 5/160/12.5 MG, QD (STARTED 3 MONTHS AGO)
     Route: 048

REACTIONS (3)
  - Neuropathy peripheral [Unknown]
  - Gait disturbance [Unknown]
  - Arthropathy [Unknown]

NARRATIVE: CASE EVENT DATE: 20230201
